FAERS Safety Report 9939422 (Version 1)
Quarter: 2014Q1

REPORT INFORMATION
  Report Type: Report from Study
  Country: US (occurrence: US)
  Receive Date: 20140303
  Receipt Date: 20140303
  Transmission Date: 20141002
  Serious: No
  Sender: FDA-Public Use
  Company Number: US-ABBVIE-13P-163-1036524-00

PATIENT
  Age: 60 Year
  Sex: Female

DRUGS (7)
  1. HUMIRA [Suspect]
     Indication: RHEUMATOID ARTHRITIS
     Dates: start: 20110629
  2. PRILOSEC [Concomitant]
     Indication: GASTROOESOPHAGEAL REFLUX DISEASE
     Dosage: DAILY
  3. METHOTREXATE [Concomitant]
     Indication: PRODUCT USED FOR UNKNOWN INDICATION
  4. VOLTAREN GEL [Concomitant]
     Indication: RHEUMATOID ARTHRITIS
  5. NASAL DECONGESTANT [Concomitant]
     Indication: PRODUCT USED FOR UNKNOWN INDICATION
  6. HYDROCODONE [Concomitant]
     Indication: PAIN
     Dosage: 10/500 ONE EVERY 4-6 HOURS AS NEEDED
  7. IMMITREX [Concomitant]
     Indication: MIGRAINE

REACTIONS (3)
  - Stomatitis [Not Recovered/Not Resolved]
  - Injection site bruising [Recovered/Resolved]
  - Headache [Unknown]
